FAERS Safety Report 14517438 (Version 2)
Quarter: 2018Q1

REPORT INFORMATION
  Report Type: Report from Study
  Country: GB (occurrence: GB)
  Receive Date: 20180212
  Receipt Date: 20180323
  Transmission Date: 20180509
  Serious: Yes (Other)
  Sender: FDA-Public Use
  Company Number: PHHY2018GB021259

PATIENT
  Sex: Female

DRUGS (1)
  1. ERELZI [Suspect]
     Active Substance: ETANERCEPT-SZZS
     Indication: RHEUMATOID ARTHRITIS
     Dosage: 50 MG, QW (PREFILLED PENS)
     Route: 065
     Dates: start: 20171113

REACTIONS (3)
  - Lower respiratory tract infection viral [Recovering/Resolving]
  - Subretinal fluid [Unknown]
  - Injection site bruising [Unknown]
